FAERS Safety Report 6441531-2 (Version None)
Quarter: 2009Q4

REPORT INFORMATION
  Report Type: 
  Country: None (occurrence: None)
  Receive Date: 20091112
  Receipt Date: 20091028
  Transmission Date: 20100525
  Serious: Yes (Hospitalization)
  Sender: FDA-Public Use
  Company Number: 2009EN000282

PATIENT
  Age: 11 Year
  Sex: Male

DRUGS (4)
  1. ABELCET [Suspect]
     Indication: ANTIFUNGAL PROPHYLAXIS
     Dosage: 5 MG/KG; IV
     Route: 042
     Dates: start: 20091024, end: 20091024
  2. TARGOCID [Concomitant]
  3. BACTRIM [Concomitant]
  4. PRIMAXIN [Concomitant]

REACTIONS (9)
  - CHILLS [None]
  - CYANOSIS [None]
  - HEADACHE [None]
  - HYPOTENSION [None]
  - INFUSION RELATED REACTION [None]
  - MALAISE [None]
  - NAUSEA [None]
  - PAIN [None]
  - PYREXIA [None]
